FAERS Safety Report 8173026-2 (Version None)
Quarter: 2012Q1

REPORT INFORMATION
  Report Type: 
  Country: None (occurrence: None)
  Receive Date: 20120229
  Receipt Date: 20120223
  Transmission Date: 20120608
  Serious: Yes (Other)
  Sender: FDA-Public Use
  Company Number: US-JNJFOC-20120213812

PATIENT
  Age: 53 Year
  Sex: Male
  Weight: 99.79 kg

DRUGS (1)
  1. LISTERINE ORIGINAL [Suspect]
     Indication: ALCOHOL USE
     Dosage: THREE LITER BOTTLES DAILY
     Route: 048

REACTIONS (5)
  - DRUG ABUSE [None]
  - FAECES DISCOLOURED [None]
  - INCORRECT ROUTE OF DRUG ADMINISTRATION [None]
  - FREQUENT BOWEL MOVEMENTS [None]
  - DRUG DEPENDENCE [None]
